FAERS Safety Report 7282659-7 (Version None)
Quarter: 2011Q1

REPORT INFORMATION
  Report Type: 
  Country: None (occurrence: None)
  Receive Date: 20110209
  Receipt Date: 20110204
  Transmission Date: 20110831
  Serious: Yes (Death)
  Sender: FDA-Public Use
  Company Number: GB-SANOFI-AVENTIS-2011SA007405

PATIENT
  Age: 65 Year
  Sex: Female

DRUGS (2)
  1. OXALIPLATIN [Suspect]
     Route: 041
  2. XELODA [Suspect]
     Route: 048

REACTIONS (1)
  - COLITIS [None]
